FAERS Safety Report 13565761 (Version 2)
Quarter: 2017Q2

REPORT INFORMATION
  Report Type: Report from Study
  Country: None (occurrence: CO)
  Receive Date: 20170520
  Receipt Date: 20170524
  Transmission Date: 20170830
  Serious: Yes (Other)
  Sender: FDA-Public Use
  Company Number: CO-ABBVIE-17K-036-1981851-00

PATIENT
  Age: 68 Year
  Sex: Male
  Weight: 84 kg

DRUGS (1)
  1. HUMIRA [Suspect]
     Active Substance: ADALIMUMAB
     Indication: PSORIASIS
     Route: 058
     Dates: start: 20130627

REACTIONS (2)
  - Abdominal wound dehiscence [Recovered/Resolved]
  - Umbilical hernia [Recovered/Resolved]

NARRATIVE: CASE EVENT DATE: 201609
